FAERS Safety Report 5929110-4 (Version None)
Quarter: 2008Q4

REPORT INFORMATION
  Report Type: 
  Country: None (occurrence: None)
  Receive Date: 20081024
  Receipt Date: 20081016
  Transmission Date: 20090506
  Serious: Yes (Death, Hospitalization)
  Sender: FDA-Public Use
  Company Number: FR-TEVA-179091ISR

PATIENT

DRUGS (4)
  1. FLUOROURACIL [Suspect]
     Route: 042
     Dates: start: 20080805, end: 20080805
  2. CYCLOPHOSPHAMIDE [Suspect]
     Route: 042
     Dates: start: 20080805, end: 20080805
  3. METHYLPREDNISOLONE 16MG TAB [Suspect]
     Route: 042
     Dates: start: 20080805, end: 20080805
  4. ONDANSETRON HYDROCHLORIDE [Suspect]
     Dosage: 1 DF
     Route: 042
     Dates: start: 20080805, end: 20080805

REACTIONS (3)
  - LUNG DISORDER [None]
  - PULMONARY FIBROSIS [None]
  - RESPIRATORY DISTRESS [None]
